FAERS Safety Report 12210031 (Version 2)
Quarter: 2016Q2

REPORT INFORMATION
  Report Type: Spontaneous
  Country: JP (occurrence: JP)
  Receive Date: 20160325
  Receipt Date: 20160401
  Transmission Date: 20160815
  Serious: Yes (Other)
  Sender: FDA-Public Use
  Company Number: JP-TAKEDA-2016TJP005577

PATIENT

DRUGS (1)
  1. LAMPION PACK [Suspect]
     Active Substance: AMOXICILLIN\LANSOPRAZOLE\METRONIDAZOLE
     Indication: HELICOBACTER INFECTION
     Dosage: UNK
     Route: 048

REACTIONS (10)
  - Rash [Unknown]
  - Stomatitis [Unknown]
  - Faeces soft [Unknown]
  - Gastric cancer [Unknown]
  - Diarrhoea [Unknown]
  - Weight increased [Unknown]
  - Vomiting [Unknown]
  - Haematochezia [Unknown]
  - Dyspepsia [Unknown]
  - Constipation [Unknown]
